FAERS Safety Report 8609923 (Version 2)
Quarter: 2014Q1

REPORT INFORMATION
  Report Type: Spontaneous
  Country: US (occurrence: None)
  Receive Date: 20120323
  Receipt Date: 20130305
  Transmission Date: 20141002
  Serious: Yes (Hospitalization)
  Sender: FDA-Public Use
  Company Number: 163-21880-11120365

PATIENT
  Age: 64 Year
  Sex: Female
  Weight: 55.79 kg

DRUGS (9)
  1. REVLIMID (LENALIDOMIDE) (10 MILLIGRAM, CAPSULES) [Suspect]
     Indication: MYELODYSPLASTIC SYNDROME
     Dosage: 10 MG, DAILY X 28 DAYS, PO
     Route: 048
     Dates: start: 20080201
  2. ADVAIR (SERETIDE MITE) [Concomitant]
  3. ALENDRONATE SODIUM [Concomitant]
  4. CALTRATE (CALCIUM CARBONATE) [Concomitant]
  5. LOMOTIL [Concomitant]
  6. PAXIL (PAROXETINE HYDROCHLORIDE) [Concomitant]
  7. SINGULAIR (MONTELUKAST SODIUM) [Concomitant]
  8. SPIRIVA (TIOTROPIUM BROMIDE) [Concomitant]
  9. LASIX (FUROSEMIDE) [Concomitant]

REACTIONS (4)
  - Full blood count decreased [None]
  - Oedema peripheral [None]
  - Platelet count decreased [None]
  - Neutrophil count decreased [None]
